FAERS Safety Report 6749787-3 (Version None)
Quarter: 2010Q2

REPORT INFORMATION
  Report Type: 
  Country: None (occurrence: None)
  Receive Date: 20100601
  Receipt Date: 20100526
  Transmission Date: 20101027
  Serious: Yes (Life-Threatening, Hospitalization, Other)
  Sender: FDA-Public Use
  Company Number: US-MERCK-1005USA00894

PATIENT
  Age: 49 Year
  Sex: Male

DRUGS (4)
  1. ISENTRESS [Suspect]
     Indication: HIV INFECTION
     Route: 048
  2. ZIAGEN [Concomitant]
     Route: 065
  3. TRUVADA [Concomitant]
     Route: 065
  4. ALLEGRA 12 HOUR [Concomitant]
     Route: 065

REACTIONS (2)
  - LYMPHOMA [None]
  - PHARYNGEAL ABSCESS [None]
